FAERS Safety Report 17572995 (Version 4)
Quarter: 2020Q2

REPORT INFORMATION
  Report Type: Spontaneous
  Country: CZ (occurrence: CZ)
  Receive Date: 20200323
  Receipt Date: 20200416
  Transmission Date: 20200713
  Serious: Yes (Hospitalization, Other)
  Sender: FDA-Public Use
  Company Number: CZ-GALDERMA-CZ2020013320

PATIENT
  Sex: Female

DRUGS (4)
  1. CLOBETASOL [Suspect]
     Active Substance: CLOBETASOL
     Indication: PRODUCT USED FOR UNKNOWN INDICATION
     Route: 065
  2. CLINDAMYCIN. [Concomitant]
     Active Substance: CLINDAMYCIN
     Indication: RASH
     Route: 042
  3. PENTASA [Concomitant]
     Active Substance: MESALAMINE
     Indication: PRODUCT USED FOR UNKNOWN INDICATION
     Dosage: 2G
     Route: 065
  4. SALOFALK [Concomitant]
     Indication: PRODUCT USED FOR UNKNOWN INDICATION
     Route: 065

REACTIONS (9)
  - Hyperkeratosis [Unknown]
  - Vasculitis [Unknown]
  - Limb discomfort [Unknown]
  - Squamous cell carcinoma of skin [Unknown]
  - Mass [Unknown]
  - Acanthosis [Unknown]
  - Pyoderma [Unknown]
  - Hyperplasia [Unknown]
  - Dermatitis [Unknown]

NARRATIVE: CASE EVENT DATE: 201909
